FAERS Safety Report 11842790 (Version 1)
Quarter: 2015Q4

REPORT INFORMATION
  Report Type: Spontaneous
  Country: US (occurrence: US)
  Receive Date: 20151216
  Receipt Date: 20151216
  Transmission Date: 20160305
  Serious: Yes (Other)
  Sender: FDA-Public Use
  Company Number: US-PFIZER INC-2015429126

PATIENT
  Age: 76 Year
  Sex: Male

DRUGS (3)
  1. ZOLOFT [Suspect]
     Active Substance: SERTRALINE HYDROCHLORIDE
     Indication: ANXIETY
     Dosage: 50 MG, UNK
  2. ZOLOFT [Suspect]
     Active Substance: SERTRALINE HYDROCHLORIDE
     Dosage: 100 MG, UNK
     Dates: end: 2012
  3. SERTRALINE HCL [Suspect]
     Active Substance: SERTRALINE HYDROCHLORIDE
     Indication: ANXIETY
     Dosage: 50 MG, UNK
     Dates: start: 2012, end: 201511

REACTIONS (8)
  - Memory impairment [Not Recovered/Not Resolved]
  - Road traffic accident [Unknown]
  - Feeling abnormal [Not Recovered/Not Resolved]
  - Agitation [Unknown]
  - Lip swelling [Unknown]
  - Urticaria [Unknown]
  - Condition aggravated [Unknown]
  - Blister [Unknown]
